FAERS Safety Report 10729392 (Version 1)
Quarter: 2015Q1

REPORT INFORMATION
  Report Type: Spontaneous
  Country: AT (occurrence: AT)
  Receive Date: 20150122
  Receipt Date: 20150122
  Transmission Date: 20150721
  Serious: Yes (Hospitalization)
  Sender: FDA-Public Use
  Company Number: PHHY2015AT004366

PATIENT
  Age: 16 Year
  Sex: Male

DRUGS (1)
  1. LEVETIRACETAM. [Suspect]
     Active Substance: LEVETIRACETAM
     Indication: SEIZURE
     Dosage: 30 MG/KG, QD
     Route: 065

REACTIONS (2)
  - Bone marrow failure [Recovering/Resolving]
  - Blood stem cell transplant failure [Recovering/Resolving]
